FAERS Safety Report 9168168 (Version 1)
Quarter: 2013Q1

REPORT INFORMATION
  Report Type: Spontaneous
  Country: JP (occurrence: None)
  Receive Date: 20130305
  Receipt Date: 20130305
  Transmission Date: 20140127
  Serious: Yes (Hospitalization)
  Sender: FDA-Public Use
  Company Number: TCI2013A00985

PATIENT
  Sex: Male

DRUGS (1)
  1. NESINA [Suspect]
     Indication: DIABETES MELLITUS
     Dosage: 25 MG (25 MG, 1 IN 1 D)  PER ORAL
     Route: 048
     Dates: start: 201301, end: 201302

REACTIONS (1)
  - Platelet count decreased [None]
